FAERS Safety Report 19006368 (Version 1)
Quarter: 2021Q1

REPORT INFORMATION
  Report Type: Report from Study
  Country: BR (occurrence: BR)
  Receive Date: 20210315
  Receipt Date: 20210315
  Transmission Date: 20210420
  Serious: Yes (Other)
  Sender: FDA-Public Use
  Company Number: BR-BIOGEN-2021BI00988775

PATIENT
  Age: 59 Year
  Sex: Female

DRUGS (1)
  1. TECFIDERA [Suspect]
     Active Substance: DIMETHYL FUMARATE
     Indication: MULTIPLE SCLEROSIS
     Route: 048

REACTIONS (16)
  - Drug intolerance [Unknown]
  - Blindness [Not Recovered/Not Resolved]
  - Fatigue [Unknown]
  - Memory impairment [Not Recovered/Not Resolved]
  - Pyrexia [Unknown]
  - Feeling abnormal [Unknown]
  - COVID-19 [Not Recovered/Not Resolved]
  - Multiple sclerosis relapse [Unknown]
  - Hypersensitivity [Unknown]
  - Skin hypertrophy [Unknown]
  - Speech disorder [Not Recovered/Not Resolved]
  - Mobility decreased [Unknown]
  - Gait disturbance [Not Recovered/Not Resolved]
  - Asthenia [Not Recovered/Not Resolved]
  - Dyspnoea [Not Recovered/Not Resolved]
  - Frustration tolerance decreased [Unknown]

NARRATIVE: CASE EVENT DATE: 202012
